FAERS Safety Report 24801567 (Version 1)
Quarter: 2025Q1

REPORT INFORMATION
  Report Type: Spontaneous
  Country: US (occurrence: US)
  Receive Date: 20250102
  Receipt Date: 20250102
  Transmission Date: 20250408
  Serious: No
  Sender: PFIZER
  Company Number: US-PFIZER INC-202400333907

PATIENT
  Age: 91 Year
  Sex: Male

DRUGS (2)
  1. XELJANZ [Suspect]
     Active Substance: TOFACITINIB CITRATE
     Indication: Colitis ulcerative
     Dosage: 5 MG, 2X/DAY
     Route: 048
  2. XELJANZ [Suspect]
     Active Substance: TOFACITINIB CITRATE
     Dosage: WITH DINNER
     Route: 048

REACTIONS (3)
  - Faeces hard [Unknown]
  - Rectal tenesmus [Unknown]
  - Intentional product misuse [Unknown]
